FAERS Safety Report 15742469 (Version 3)
Quarter: 2021Q1

REPORT INFORMATION
  Report Type: Spontaneous
  Country: US (occurrence: US)
  Receive Date: 20181219
  Receipt Date: 20210315
  Transmission Date: 20210419
  Serious: Yes (Other)
  Sender: FDA-Public Use
  Company Number: PHEH2018US053588

PATIENT
  Sex: Male

DRUGS (1)
  1. TASIGNA [Suspect]
     Active Substance: NILOTINIB
     Indication: CHRONIC MYELOID LEUKAEMIA
     Dosage: 200 MG, BID
     Route: 048
     Dates: start: 20121207, end: 201902

REACTIONS (20)
  - Coronary artery disease [Unknown]
  - Peripheral arterial occlusive disease [Unknown]
  - Injury [Unknown]
  - Intermittent claudication [Unknown]
  - Back pain [Unknown]
  - Food poisoning [Unknown]
  - Pancreatic mass [Unknown]
  - Pain [Unknown]
  - Second primary malignancy [Unknown]
  - Large intestine polyp [Unknown]
  - Neuroendocrine carcinoma [Unknown]
  - Myocardial ischaemia [Unknown]
  - Arthritis [Unknown]
  - Cardiovascular disorder [Unknown]
  - Peripheral vascular disorder [Unknown]
  - Emotional distress [Unknown]
  - Abdominal abscess [Unknown]
  - Pain in extremity [Unknown]
  - Arteriosclerosis [Unknown]
  - Anxiety [Unknown]
